FAERS Safety Report 7075304-7 (Version None)
Quarter: 2010Q4

REPORT INFORMATION
  Report Type: 
  Country: None (occurrence: None)
  Receive Date: 20101030
  Receipt Date: 20100706
  Transmission Date: 20110411
  Serious: No
  Sender: FDA-Public Use
  Company Number: US-WYE-H15947810

PATIENT
  Age: 88 Year
  Sex: Male

DRUGS (1)
  1. ADVIL PM [Suspect]
     Indication: INSOMNIA
     Dosage: 2 CAPLETS NIGHTLY
     Route: 048

REACTIONS (1)
  - DRUG EFFECT DECREASED [None]
